FAERS Safety Report 4766545-X (Version None)
Quarter: 2005Q3

REPORT INFORMATION
  Report Type: 
  Country: None (occurrence: None)
  Receive Date: 20050909
  Receipt Date: 20050902
  Transmission Date: 20060218
  Serious: Yes (Disabling, Congenital Anomaly)
  Sender: FDA-Public Use
  Company Number: B0195186A

PATIENT
  Age: 12 Month
  Sex: Male
  Weight: 8.9812 kg

DRUGS (2)
  1. PAXIL [Suspect]
     Indication: DEPRESSION
     Dosage: PER DAY
  2. NICOTINE [Concomitant]

REACTIONS (8)
  - ASTHENIA [None]
  - COGNITIVE DISORDER [None]
  - DEVELOPMENTAL COORDINATION DISORDER [None]
  - DEVELOPMENTAL DELAY [None]
  - DRUG EXPOSURE DURING PREGNANCY [None]
  - EXPRESSIVE LANGUAGE DISORDER [None]
  - HYPOTONIA [None]
  - SPEECH DISORDER DEVELOPMENTAL [None]
